FAERS Safety Report 11427735 (Version 1)
Quarter: 2015Q3

REPORT INFORMATION
  Report Type: Spontaneous
  Country: US (occurrence: None)
  Receive Date: 20150827
  Receipt Date: 20150827
  Transmission Date: 20151125
  Serious: Yes (Other)
  Sender: FDA-Public Use
  Company Number: None

PATIENT
  Age: 35 Year
  Sex: Female

DRUGS (1)
  1. LUPRON DEPOT [Suspect]
     Active Substance: LEUPROLIDE ACETATE
     Indication: ENDOMETRIOSIS
     Dosage: 3.75 INTRAMUSCULAR Q MONTH
     Route: 030
     Dates: start: 201504

REACTIONS (5)
  - Inflammation [None]
  - Sciatica [None]
  - Injection site reaction [None]
  - Pain [None]
  - Back pain [None]

NARRATIVE: CASE EVENT DATE: 20150725
